FAERS Safety Report 4440255-0 (Version None)
Quarter: 2004Q3

REPORT INFORMATION
  Report Type: 
  Country: None (occurrence: None)
  Receive Date: 20040903
  Receipt Date: 20040319
  Transmission Date: 20050211
  Serious: No
  Sender: FDA-Public Use
  Company Number: US-GLAXOSMITHKLINE-A0504000A

PATIENT
  Sex: Male

DRUGS (1)
  1. REQUIP [Suspect]
     Indication: DRUG USE FOR UNKNOWN INDICATION
     Route: 048

REACTIONS (1)
  - MEDICATION ERROR [None]
